FAERS Safety Report 19586007 (Version 1)
Quarter: 2021Q3

REPORT INFORMATION
  Report Type: Spontaneous
  Country: US (occurrence: US)
  Receive Date: 20210720
  Receipt Date: 20210720
  Transmission Date: 20211014
  Serious: Yes (Other)
  Sender: FDA-Public Use
  Company Number: US-PFIZER INC-2021851575

PATIENT
  Age: 71 Year
  Sex: Female

DRUGS (1)
  1. CELEBREX [Suspect]
     Active Substance: CELECOXIB
     Dosage: UNK
     Dates: start: 2002

REACTIONS (6)
  - Bronchitis [Unknown]
  - Sinusitis [Unknown]
  - Tremor [Unknown]
  - Dystonia [Unknown]
  - Time perception altered [Unknown]
  - COVID-19 [Unknown]
